FAERS Safety Report 7466946-5 (Version None)
Quarter: 2011Q2

REPORT INFORMATION
  Report Type: 
  Country: None (occurrence: None)
  Receive Date: 20110509
  Receipt Date: 20101008
  Transmission Date: 20111010
  Serious: No
  Sender: FDA-Public Use
  Company Number: US-ALEXION-A201001279

PATIENT
  Sex: Female

DRUGS (3)
  1. ZITHROMAX [Concomitant]
     Indication: ANTIBIOTIC PROPHYLAXIS
  2. SOLIRIS [Suspect]
     Indication: PAROXYSMAL NOCTURNAL HAEMOGLOBINURIA
     Dosage: UNK
     Route: 042
  3. TAMOXIFEN CITRATE [Suspect]

REACTIONS (5)
  - CONDITION AGGRAVATED [None]
  - PANIC ATTACK [None]
  - PAROXYSMAL NOCTURNAL HAEMOGLOBINURIA [None]
  - ABDOMINAL PAIN [None]
  - ANXIETY [None]
